FAERS Safety Report 10171494 (Version 3)
Quarter: 2014Q3

REPORT INFORMATION
  Report Type: Report from Study
  Country: US (occurrence: US)
  Receive Date: 20140514
  Receipt Date: 20140718
  Transmission Date: 20150326
  Serious: Yes (Hospitalization, Disabling, Other)
  Sender: FDA-Public Use
  Company Number: US-SA-2014SA059588

PATIENT
  Age: 76 Year
  Sex: Male

DRUGS (3)
  1. LANTUS SOLOSTAR [Suspect]
     Active Substance: INSULIN GLARGINE
     Indication: DIABETES MELLITUS
     Dosage: DOSE:100 UNIT(S)
     Route: 065
  2. NOVOLOG [Concomitant]
     Active Substance: INSULIN ASPART
  3. SOLOSTAR [Concomitant]
     Active Substance: DEVICE

REACTIONS (7)
  - Muscular weakness [Unknown]
  - Walking aid user [Unknown]
  - Nephrolithiasis [Not Recovered/Not Resolved]
  - Incorrect dose administered [Unknown]
  - Hernia repair [Unknown]
  - Pain [Not Recovered/Not Resolved]
  - Back disorder [Unknown]
